FAERS Safety Report 24223580 (Version 1)
Quarter: 2024Q3

REPORT INFORMATION
  Report Type: Spontaneous
  Country: US (occurrence: US)
  Receive Date: 20240819
  Receipt Date: 20240819
  Transmission Date: 20241016
  Serious: Yes (Hospitalization)
  Sender: MYLAN
  Company Number: US-MYLANLABS-2024M1075258

PATIENT
  Age: 54 Year
  Sex: Female

DRUGS (3)
  1. LIDOCAINE [Suspect]
     Active Substance: LIDOCAINE
     Indication: Abdominal pain
     Dosage: 1 MILLILITER
     Route: 065
  2. IOHEXOL [Suspect]
     Active Substance: IOHEXOL
     Indication: Abdominal pain
     Dosage: 0.5 MILLILITER
     Route: 008
  3. METHYLPREDNISOLONE [Suspect]
     Active Substance: METHYLPREDNISOLONE
     Indication: Abdominal pain
     Dosage: 80 MILLIGRAM
     Route: 065

REACTIONS (1)
  - Pain [Unknown]
